FAERS Safety Report 8261972-0 (Version None)
Quarter: 2012Q2

REPORT INFORMATION
  Report Type: 
  Country: None (occurrence: None)
  Receive Date: 20120405
  Receipt Date: 20120326
  Transmission Date: 20120825
  Serious: Yes (Other)
  Sender: FDA-Public Use
  Company Number: CO-AMGEN-COLSP2012020063

PATIENT
  Age: 53 Year
  Sex: Female

DRUGS (7)
  1. CAPTOPRIL [Concomitant]
     Indication: HYPERTENSION
     Dosage: 1 CAPSULE OF 50 MG EVERY 12 HOURS ORALLY
     Route: 048
     Dates: start: 20100301
  2. ENBREL [Suspect]
     Indication: PSORIATIC ARTHROPATHY
     Dosage: 50 MG, WEEKLY
     Route: 058
     Dates: start: 20110912, end: 20120201
  3. LOSARTAN POTASSIUM [Concomitant]
     Indication: HYPERTENSION
     Dosage: 1 CAPSULE OF 25 MG ONCE A DAY ORALLY
     Route: 048
     Dates: start: 20100301
  4. RANITIDINE [Concomitant]
     Dosage: 150 MG, UNK
  5. METHOTREXATE [Concomitant]
     Indication: PSORIATIC ARTHROPATHY
     Dosage: 10 CAPSULES OF 2.5 MG EVERY 8 DAYS
     Route: 048
     Dates: start: 20100301
  6. ENBREL [Suspect]
     Indication: PSORIASIS
  7. ASPIRIN [Concomitant]
     Dosage: 100 MG, UNK

REACTIONS (3)
  - OVARIAN CANCER [None]
  - HEADACHE [None]
  - GENERALISED OEDEMA [None]
